FAERS Safety Report 19864975 (Version 1)
Quarter: 2021Q3

REPORT INFORMATION
  Report Type: Report from Study
  Country: EG (occurrence: EG)
  Receive Date: 20210922
  Receipt Date: 20210922
  Transmission Date: 20211014
  Serious: Yes (Other)
  Sender: FDA-Public Use
  Company Number: NVSC2021EG205888

PATIENT
  Age: 36 Year
  Sex: Male

DRUGS (3)
  1. COSENTYX [Suspect]
     Active Substance: SECUKINUMAB
     Indication: ANKYLOSING SPONDYLITIS
     Dosage: 150 MG, QMO(ONE PEN PER WEEK FOR A MONTH (4 WEEKS) THEN, ONE PEN MONTHLY)
     Route: 058
     Dates: start: 201909, end: 202012
  2. DICLAC [Concomitant]
     Active Substance: DICLOFENAC
     Indication: PRODUCT USED FOR UNKNOWN INDICATION
     Dosage: UNK UNK, QD(2?3 TABLETS)
     Route: 065
  3. METHOTREXATE. [Concomitant]
     Active Substance: METHOTREXATE
     Indication: PRODUCT USED FOR UNKNOWN INDICATION
     Dosage: 1.5 UNK, QW(CM)
     Route: 058

REACTIONS (6)
  - Mobility decreased [Not Recovered/Not Resolved]
  - Product dose omission issue [Unknown]
  - Neck pain [Not Recovered/Not Resolved]
  - Symptom recurrence [Not Recovered/Not Resolved]
  - Back pain [Not Recovered/Not Resolved]
  - Inappropriate schedule of product administration [Unknown]

NARRATIVE: CASE EVENT DATE: 201909
